FAERS Safety Report 6457497-5 (Version None)
Quarter: 2009Q4

REPORT INFORMATION
  Report Type: 
  Country: None (occurrence: None)
  Receive Date: 20091125
  Receipt Date: 20091112
  Transmission Date: 20100525
  Serious: Yes (Hospitalization, Other)
  Sender: FDA-Public Use
  Company Number: PHHY2009JP42775

PATIENT
  Sex: Female

DRUGS (7)
  1. VOLTAREN [Suspect]
     Indication: PERICORONITIS
     Dosage: 25 MG, TID
     Route: 048
     Dates: start: 20080408
  2. VOLTAREN [Suspect]
     Indication: GINGIVAL ABSCESS
     Dosage: 25 MG, TID
     Route: 048
     Dates: start: 20080728
  3. BAREON [Suspect]
     Indication: PERICORONITIS
     Dosage: 600 MG/DAY
     Route: 048
     Dates: start: 20080408, end: 20080411
  4. BAREON [Suspect]
     Dosage: 600 MG/DAY
     Route: 048
     Dates: start: 20080623, end: 20080626
  5. BAREON [Suspect]
     Dosage: 600 MG/DAY
     Route: 048
     Dates: start: 20080728
  6. BAREON [Suspect]
     Dosage: 600 MG/DAY
     Route: 048
     Dates: start: 20080801, end: 20090803
  7. LEFTOSE [Concomitant]
     Indication: GINGIVAL ABSCESS
     Dosage: 150 MG, UNK
     Route: 048
     Dates: start: 20080801, end: 20080803

REACTIONS (5)
  - DRUG ERUPTION [None]
  - ERYTHEMA [None]
  - GINGIVAL OPERATION [None]
  - PHOTOSENSITIVITY REACTION [None]
  - SUNBURN [None]
